FAERS Safety Report 4657773-2 (Version None)
Quarter: 2005Q2

REPORT INFORMATION
  Report Type: 
  Country: None (occurrence: None)
  Receive Date: 20050510
  Receipt Date: 20050429
  Transmission Date: 20051028
  Serious: Yes (Other)
  Sender: FDA-Public Use
  Company Number: CH-GLAXOSMITHKLINE-B0379867A

PATIENT
  Age: 40 Year
  Sex: Female

DRUGS (3)
  1. ACETAMINOPHEN [Suspect]
     Route: 048
     Dates: start: 20050301, end: 20050401
  2. MYAMBUTOL [Suspect]
     Indication: TUBERCULOSIS
     Dosage: 800MG PER DAY
     Route: 048
     Dates: start: 20041201
  3. RIMIFON [Suspect]
     Indication: TUBERCULOSIS
     Dosage: 300MG PER DAY
     Route: 048
     Dates: start: 20041201

REACTIONS (2)
  - ANGIONEUROTIC OEDEMA [None]
  - URTICARIA [None]
